FAERS Safety Report 16671149 (Version 2)
Quarter: 2019Q3

REPORT INFORMATION
  Report Type: Spontaneous
  Country: SI (occurrence: SI)
  Receive Date: 20190805
  Receipt Date: 20190901
  Transmission Date: 20191004
  Serious: Yes (Hospitalization)
  Sender: FDA-Public Use
  Company Number: SI-BIOGEN-2019BI00770757

PATIENT
  Age: 49 Year
  Sex: Female

DRUGS (1)
  1. SPINRAZA [Suspect]
     Active Substance: NUSINERSEN
     Indication: SPINAL MUSCULAR ATROPHY
     Dosage: 1 AMPULE
     Route: 037
     Dates: start: 20190719, end: 20190730

REACTIONS (8)
  - Cerebral infarction [Not Recovered/Not Resolved]
  - Cerebral vascular occlusion [Not Recovered/Not Resolved]
  - Back pain [Recovered/Resolved]
  - Partial seizures [Recovered/Resolved]
  - Cerebral venous thrombosis [Not Recovered/Not Resolved]
  - Post lumbar puncture syndrome [Recovered/Resolved]
  - Intracranial aneurysm [Not Recovered/Not Resolved]
  - Subarachnoid haemorrhage [Not Recovered/Not Resolved]

NARRATIVE: CASE EVENT DATE: 201907
